FAERS Safety Report 14702828 (Version 2)
Quarter: 2018Q2

REPORT INFORMATION
  Report Type: Spontaneous
  Country: US (occurrence: US)
  Receive Date: 20180402
  Receipt Date: 20180507
  Transmission Date: 20180711
  Serious: No
  Sender: FDA-Public Use
  Company Number: US-B.I. PHARMACEUTICALS,INC./RIDGEFIELD-2018-BI-016884

PATIENT
  Age: 65 Year
  Sex: Female

DRUGS (3)
  1. SPIRIVA RESPIMAT [Suspect]
     Active Substance: TIOTROPIUM BROMIDE
     Indication: ASTHMA
     Dosage: FORM STRENGTH: 2.5 MCG;  ADMINISTRATION CORRECT? YES ACTION(S) TAKEN WITH PRODUCT: DOSE NOT CHANGED
     Route: 048
     Dates: start: 201802
  2. LEVALBUTEROL. [Concomitant]
     Active Substance: LEVALBUTEROL
     Indication: ASTHMA
     Dosage: FORM STRENGTH: 200MCG; FORMULATION: INHALATION AEROSOL
     Route: 055
     Dates: start: 2015
  3. ASMANEX [Concomitant]
     Active Substance: MOMETASONE FUROATE
     Indication: ASTHMA
     Dosage: FORM STRENGTH: 220MCG; FORMULATION: INHALATION AEROSOL
     Route: 055
     Dates: start: 2015

REACTIONS (4)
  - Product use in unapproved indication [Unknown]
  - Drug ineffective [Unknown]
  - Device malfunction [Unknown]
  - Product quality issue [Unknown]
